FAERS Safety Report 4955221-6 (Version None)
Quarter: 2006Q1

REPORT INFORMATION
  Report Type: 
  Country: None (occurrence: None)
  Receive Date: 20060328
  Receipt Date: 20060118
  Transmission Date: 20060701
  Serious: Yes (Other)
  Sender: FDA-Public Use
  Company Number: PHBS2006JP01225

PATIENT
  Age: 36 Year
  Sex: Female

DRUGS (1)
  1. BROMOCRIPTINE MESYLATE [Suspect]
     Indication: HYPERPROLACTINAEMIA

REACTIONS (6)
  - ANOREXIA [None]
  - ENDOMETRIAL CANCER [None]
  - GENITAL HAEMORRHAGE [None]
  - MENORRHAGIA [None]
  - SECRETORY ADENOMA OF PITUITARY [None]
  - SMEAR CERVIX ABNORMAL [None]
